FAERS Safety Report 11127473 (Version 1)
Quarter: 2015Q2

REPORT INFORMATION
  Report Type: Spontaneous
  Country: US (occurrence: None)
  Receive Date: 20150520
  Receipt Date: 20150520
  Transmission Date: 20150821
  Serious: Yes (Hospitalization)
  Sender: FDA-Public Use
  Company Number: None

PATIENT
  Age: 63 Year
  Sex: Male
  Weight: 132.9 kg

DRUGS (1)
  1. DAPSONE. [Suspect]
     Active Substance: DAPSONE
     Dates: start: 20141011

REACTIONS (5)
  - Fatigue [None]
  - Haematocrit decreased [None]
  - Anaemia [None]
  - Diarrhoea [None]
  - Dizziness [None]

NARRATIVE: CASE EVENT DATE: 20141011
